FAERS Safety Report 10217266 (Version 3)
Quarter: 2014Q3

REPORT INFORMATION
  Report Type: Spontaneous
  Country: JP (occurrence: JP)
  Receive Date: 20140604
  Receipt Date: 20140819
  Transmission Date: 20150326
  Serious: Yes (Life-Threatening, Hospitalization)
  Sender: FDA-Public Use
  Company Number: JP-CUBIST PHARMACEUTICAL, INC.-2014CBST000781

PATIENT

DRUGS (9)
  1. RIVOTRIL [Suspect]
     Active Substance: CLONAZEPAM
     Indication: HYPOAESTHESIA
     Dosage: 0.25 MG, BID
     Route: 048
     Dates: start: 20131123, end: 20131202
  2. WARFARIN [Concomitant]
     Active Substance: WARFARIN
     Indication: INTRACARDIAC THROMBUS
     Dosage: 2 MG, ONCE DAILY
     Route: 048
     Dates: start: 20131128, end: 20131202
  3. MIYA-BM [Concomitant]
     Active Substance: CLOSTRIDIUM BUTYRICUM SPORES STRAIN M-55
     Indication: DIARRHOEA
     Dosage: 1 G, TID
     Route: 048
     Dates: start: 20130828
  4. CRAVIT [Concomitant]
     Active Substance: LEVOFLOXACIN
     Indication: STAPHYLOCOCCAL INFECTION
     Dosage: 500 MG, ONCE DAILY
     Route: 041
     Dates: start: 20131122, end: 20131129
  5. HEPARIN [Concomitant]
     Active Substance: HEPARIN SODIUM
     Indication: INTRACARDIAC THROMBUS
     Dosage: 10 THOUSAND-MILLION UNIT, ONCE DAILY
     Route: 041
     Dates: start: 20131128, end: 20131130
  6. CUBICIN [Suspect]
     Active Substance: DAPTOMYCIN
     Indication: STAPHYLOCOCCAL BACTERAEMIA
     Dosage: 0.6 DOSAGE FORM, ONCE A DAY
     Route: 041
     Dates: start: 20131126, end: 20131202
  7. PREDONINE [Concomitant]
     Active Substance: PREDNISOLONE\PREDNISOLONE ACETATE\PREDNISOLONE SODIUM SUCCINATE
     Indication: ANTI-NEUTROPHIL CYTOPLASMIC ANTIBODY POSITIVE VASCULITIS
     Dosage: 20 MG, ONCE DAILY
     Route: 048
     Dates: start: 20131120, end: 20131209
  8. TAKEPRON [Concomitant]
     Active Substance: LANSOPRAZOLE
     Indication: PROPHYLAXIS
     Dosage: 30 MG, ONCE DAILY
     Route: 048
     Dates: start: 20131019, end: 20140217
  9. PRODIF [Concomitant]
     Active Substance: FOSFLUCONAZOLE
     Indication: PSOAS ABSCESS
     Dosage: 400 MG, ONCE DAILY
     Route: 042
     Dates: start: 20131101, end: 20131203

REACTIONS (2)
  - White blood cell count decreased [Recovered/Resolved]
  - Neutrophil count decreased [Recovered/Resolved]

NARRATIVE: CASE EVENT DATE: 20131128
